FAERS Safety Report 6420985-1 (Version None)
Quarter: 2009Q4

REPORT INFORMATION
  Report Type: 
  Country: None (occurrence: None)
  Receive Date: 20091030
  Receipt Date: 20091019
  Transmission Date: 20100525
  Serious: Yes (Other)
  Sender: FDA-Public Use
  Company Number: AT-ROCHE-663060

PATIENT
  Age: 44 Year
  Sex: Female
  Weight: 60 kg

DRUGS (1)
  1. CELLCEPT [Suspect]
     Dosage: DOSE REPORTED AS: 2X500 MG
     Route: 048
     Dates: end: 20080401

REACTIONS (2)
  - INFECTION [None]
  - LUNG DISORDER [None]
